FAERS Safety Report 4564335-4 (Version None)
Quarter: 2005Q1

REPORT INFORMATION
  Report Type: 
  Country: None (occurrence: None)
  Receive Date: 20050128
  Receipt Date: 20040402
  Transmission Date: 20050727
  Serious: Yes (Hospitalization)
  Sender: FDA-Public Use
  Company Number: US-GLAXOSMITHKLINE-A0506311A

PATIENT
  Age: 20 Year
  Sex: Male

DRUGS (3)
  1. PAXIL [Suspect]
     Indication: ANXIETY
     Route: 048
     Dates: start: 20000401
  2. XANAX [Concomitant]
  3. EFFEXOR [Concomitant]

REACTIONS (13)
  - ANXIETY [None]
  - DISSOCIATION [None]
  - DRUG WITHDRAWAL SYNDROME [None]
  - HEADACHE [None]
  - INJURY [None]
  - MOOD SWINGS [None]
  - NAUSEA [None]
  - PARAESTHESIA [None]
  - POLYSUBSTANCE ABUSE [None]
  - SELF-MEDICATION [None]
  - SUICIDAL IDEATION [None]
  - THEFT [None]
  - TREMOR [None]
